FAERS Safety Report 6456767-4 (Version None)
Quarter: 2009Q4

REPORT INFORMATION
  Report Type: 
  Country: None (occurrence: None)
  Receive Date: 20091125
  Receipt Date: 20091117
  Transmission Date: 20100525
  Serious: Yes (Hospitalization, Other)
  Sender: FDA-Public Use
  Company Number: BR-ABBOTT-09P-020-0600102-00

PATIENT
  Sex: Male
  Weight: 77 kg

DRUGS (5)
  1. HUMIRA [Suspect]
     Indication: RHEUMATOID ARTHRITIS
     Route: 058
     Dates: start: 20080101
  2. METHOTREXATE [Concomitant]
     Indication: RHEUMATOID ARTHRITIS
     Route: 058
     Dates: start: 20080101
  3. LEXATO [Concomitant]
     Indication: RHEUMATOID ARTHRITIS
     Dates: start: 20080101
  4. LEXATO [Concomitant]
     Indication: OSTEOARTHRITIS
  5. ANESTHESIA [Concomitant]
     Indication: MENISCUS REMOVAL
     Dates: start: 20090801, end: 20090801

REACTIONS (4)
  - ARTHRALGIA [None]
  - ARTHRITIS [None]
  - DRUG INEFFECTIVE [None]
  - ERYTHEMA [None]
